FAERS Safety Report 14262615 (Version 2)
Quarter: 2018Q1

REPORT INFORMATION
  Report Type: Spontaneous
  Country: US (occurrence: US)
  Receive Date: 20171208
  Receipt Date: 20180214
  Transmission Date: 20180508
  Serious: No
  Sender: FDA-Public Use
  Company Number: US-PFIZER INC-2017526620

PATIENT
  Age: 79 Year
  Sex: Female
  Weight: 54 kg

DRUGS (11)
  1. CULTURELLE [Concomitant]
     Active Substance: LACTOBACILLUS RHAMNOSUS
     Dosage: 4200 MG, 1X/DAY
  2. LISINOPRIL. [Concomitant]
     Active Substance: LISINOPRIL
     Dosage: 2.5 MG, 1X/DAY
  3. CRANBERRY. [Concomitant]
     Active Substance: CRANBERRY
     Dosage: 4200 MG, ONCE DAILY
  4. ATROPINE SULFATE/DIPHENOXYLATE HYDROCHLORIDE [Suspect]
     Active Substance: ATROPINE SULFATE\DIPHENOXYLATE HYDROCHLORIDE
     Indication: DIARRHOEA
     Dosage: 2.5MG TABLETS/TAKE ONE TABLET BY MOUTH, FOUR TIMES DAILY AS NEEDED
     Route: 048
  5. LEVOTHYROXINE. [Concomitant]
     Active Substance: LEVOTHYROXINE
     Indication: THYROID DISORDER
     Dosage: 0.025 MG, 1X/DAY
  6. OXYBUTYNIN. [Concomitant]
     Active Substance: OXYBUTYNIN CHLORIDE
     Dosage: 10 MG, 1X/DAY
  7. ASPIRIN. [Concomitant]
     Active Substance: ASPIRIN
     Dosage: ONCE A DAY
  8. SIMVASTATIN. [Concomitant]
     Active Substance: SIMVASTATIN
     Dosage: 40 MG, 1X/DAY
  9. METOPROLOL. [Concomitant]
     Active Substance: METOPROLOL
     Dosage: 25 MG, 1X/DAY
  10. OMEPRAZOLE. [Concomitant]
     Active Substance: OMEPRAZOLE
     Dosage: 20 MG, 1X/DAY
  11. ISOSORBIDE. [Concomitant]
     Active Substance: ISOSORBIDE
     Dosage: 30 MG, 1X/DAY

REACTIONS (1)
  - Drug ineffective [Unknown]

NARRATIVE: CASE EVENT DATE: 201711
